FAERS Safety Report 6017201-1 (Version None)
Quarter: 2008Q4

REPORT INFORMATION
  Report Type: 
  Country: None (occurrence: None)
  Receive Date: 20081223
  Receipt Date: 20081222
  Transmission Date: 20090506
  Serious: Yes (Hospitalization)
  Sender: FDA-Public Use
  Company Number: US-BRISTOL-MYERS SQUIBB COMPANY-14440390

PATIENT
  Age: 64 Year
  Sex: Male
  Weight: 79 kg

DRUGS (2)
  1. CISPLATIN [Suspect]
     Indication: PHARYNGEAL CANCER STAGE UNSPECIFIED
     Dosage: START DATE 04NOV08; DAY 1 AND 22
     Route: 042
     Dates: start: 20081202, end: 20081202
  2. RADIATION THERAPY [Suspect]
     Indication: PHARYNGEAL CANCER STAGE UNSPECIFIED
     Dosage: START DATE 04NOV08; 29 DF= 29 FRACTIONS ;  NO.OF FRACTIONS:29 NO.OF ELAPSED DAYS:35
     Dates: start: 20081209, end: 20081209

REACTIONS (5)
  - BLOOD CREATININE INCREASED [None]
  - DEHYDRATION [None]
  - DYSPNOEA [None]
  - PLATELET COUNT DECREASED [None]
  - THROMBOSIS [None]
